FAERS Safety Report 4806148-1 (Version None)
Quarter: 2005Q4

REPORT INFORMATION
  Report Type: 
  Country: None (occurrence: None)
  Receive Date: 20051021
  Receipt Date: 20050927
  Transmission Date: 20060501
  Serious: Yes (Disabling)
  Sender: FDA-Public Use
  Company Number: DE-SANOFI-SYNTHELABO-A04200500828

PATIENT
  Sex: Female
  Weight: 69 kg

DRUGS (4)
  1. ELOXATIN [Suspect]
     Indication: COLON CANCER METASTATIC
     Route: 041
     Dates: start: 20050901, end: 20050901
  2. ELOXATIN [Suspect]
     Indication: METASTASES TO LIVER
     Route: 041
     Dates: start: 20050901, end: 20050901
  3. CITALOPRAM [Concomitant]
     Indication: DEPRESSION
     Dosage: UNK
     Route: 048
  4. TRIMIPRAMINE MALEATE [Concomitant]
     Indication: DEPRESSION
     Dosage: UNK
     Route: 048

REACTIONS (4)
  - GAIT DISTURBANCE [None]
  - MUSCLE SPASMS [None]
  - MYALGIA [None]
  - NEUROMYOPATHY [None]
